FAERS Safety Report 6857279-6 (Version None)
Quarter: 2010Q3

REPORT INFORMATION
  Report Type: 
  Country: None (occurrence: None)
  Receive Date: 20100719
  Receipt Date: 20100707
  Transmission Date: 20110219
  Serious: Yes (Other)
  Sender: FDA-Public Use
  Company Number: GB-PFIZER INC-2010085000

PATIENT
  Sex: Female

DRUGS (2)
  1. SUNITINIB MALATE [Suspect]
     Indication: GASTROINTESTINAL STROMAL TUMOUR
     Dosage: UNK
     Dates: start: 20090511, end: 20100525
  2. GLEEVEC [Suspect]
     Indication: GASTROINTESTINAL STROMAL TUMOUR
     Dosage: 400 MG, 1X/DAY
     Dates: start: 20061004, end: 20090511

REACTIONS (4)
  - BLOOD CREATININE INCREASED [None]
  - GASTROINTESTINAL STROMAL TUMOUR [None]
  - HEPATIC STEATOSIS [None]
  - MALIGNANT NEOPLASM PROGRESSION [None]
